FAERS Safety Report 16622102 (Version 3)
Quarter: 2019Q3

REPORT INFORMATION
  Report Type: Spontaneous
  Country: US (occurrence: US)
  Receive Date: 20190723
  Receipt Date: 20190802
  Transmission Date: 20191004
  Serious: No
  Sender: FDA-Public Use
  Company Number: US-AMGEN INC.-USASP2019116172

PATIENT
  Age: 56 Year
  Sex: Male

DRUGS (1)
  1. AIMOVIG [Suspect]
     Active Substance: ERENUMAB-AOOE
     Indication: MIGRAINE
     Dosage: 70 MILLIGRAM, QMO
     Route: 065
     Dates: start: 201905

REACTIONS (3)
  - Device issue [Unknown]
  - Injection site bruising [Unknown]
  - Therapeutic response shortened [Unknown]

NARRATIVE: CASE EVENT DATE: 201906
